FAERS Safety Report 21480543 (Version 5)
Quarter: 2023Q2

REPORT INFORMATION
  Report Type: Report from Study
  Country: US (occurrence: US)
  Receive Date: 20221019
  Receipt Date: 20230408
  Transmission Date: 20230722
  Serious: Yes (Hospitalization, Other)
  Sender: FDA-Public Use
  Company Number: US-ABBVIE-4161292

PATIENT
  Age: 47 Year
  Sex: Female
  Weight: 73.481 kg

DRUGS (3)
  1. SKYRIZI [Suspect]
     Active Substance: RISANKIZUMAB-RZAA
     Indication: Crohn^s disease
     Route: 041
     Dates: start: 202209
  2. SKYRIZI [Suspect]
     Active Substance: RISANKIZUMAB-RZAA
     Route: 041
  3. SKYRIZI [Suspect]
     Active Substance: RISANKIZUMAB-RZAA
     Route: 041

REACTIONS (9)
  - Crohn^s disease [Recovering/Resolving]
  - Pain [Recovering/Resolving]
  - Colon operation [Recovering/Resolving]
  - Nausea [Recovering/Resolving]
  - Dizziness [Recovering/Resolving]
  - Feeling abnormal [Unknown]
  - Headache [Recovering/Resolving]
  - Discomfort [Unknown]
  - Colectomy [Unknown]

NARRATIVE: CASE EVENT DATE: 20221112
